FAERS Safety Report 26124351 (Version 1)
Quarter: 2025Q4

REPORT INFORMATION
  Report Type: Other
  Country: EU (occurrence: EU)
  Receive Date: 20251205
  Receipt Date: 20251205
  Transmission Date: 20260118
  Serious: Yes (Hospitalization)
  Sender: Atnahs Healthcare
  Company Number: None

PATIENT

DRUGS (2)
  1. NAPROSYN [Interacting]
     Active Substance: NAPROXEN
     Indication: Suicidal ideation
     Dosage: 8.25 G, ONCE
     Route: 048
     Dates: start: 20250705, end: 20250705
  2. ACETAMINOPHEN [Interacting]
     Active Substance: ACETAMINOPHEN
     Indication: Suicidal ideation
     Dosage: 35 G, ONCE
     Route: 048
     Dates: start: 20250705, end: 20250705

REACTIONS (2)
  - Hepatocellular injury [Recovering/Resolving]
  - Intentional overdose [Recovered/Resolved]

NARRATIVE: CASE EVENT DATE: 20250705
